FAERS Safety Report 6690720-0 (Version None)
Quarter: 2010Q2

REPORT INFORMATION
  Report Type: 
  Country: None (occurrence: None)
  Receive Date: 20100420
  Receipt Date: 20100420
  Transmission Date: 20101027
  Serious: Yes (Death, Other)
  Sender: FDA-Public Use
  Company Number: None

PATIENT
  Sex: Female

DRUGS (2)
  1. GEMZAR [Suspect]
     Dosage: 1177MG CHEMO DAY 1+8 Q 21D INTRAVENOUS
     Route: 042
     Dates: end: 20100215
  2. ZOMETA [Suspect]
     Dosage: 3.3MG MONTHLY INTRAVENOUS
     Route: 042
     Dates: end: 20100215

REACTIONS (1)
  - DEATH [None]
